FAERS Safety Report 8216184-3 (Version None)
Quarter: 2012Q1

REPORT INFORMATION
  Report Type: 
  Country: None (occurrence: None)
  Receive Date: 20120316
  Receipt Date: 20120306
  Transmission Date: 20120608
  Serious: Yes (Life-Threatening, Hospitalization, Disabling, Other)
  Sender: FDA-Public Use
  Company Number: US-GLAXOSMITHKLINE-A0966767A

PATIENT
  Sex: Female

DRUGS (3)
  1. ZOLOFT [Concomitant]
  2. LAMOTRIGINE [Suspect]
     Indication: BIPOLAR DISORDER
     Dosage: 200MG PER DAY
     Route: 048
     Dates: start: 20040101
  3. WART MEDICATION [Suspect]
     Route: 065

REACTIONS (11)
  - SELF-INJURIOUS IDEATION [None]
  - ANXIETY [None]
  - SWELLING FACE [None]
  - EYE SWELLING [None]
  - LOCAL SWELLING [None]
  - PSYCHOTIC DISORDER [None]
  - CELLULITIS [None]
  - OEDEMA PERIPHERAL [None]
  - PRURITUS [None]
  - RASH [None]
  - ANAEMIA [None]
